FAERS Safety Report 6904762-0 (Version None)
Quarter: 2010Q3

REPORT INFORMATION
  Report Type: 
  Country: None (occurrence: None)
  Receive Date: 20100804
  Receipt Date: 20100726
  Transmission Date: 20110219
  Serious: No
  Sender: FDA-Public Use
  Company Number: US-BIOGENIDEC-2010BI025634

PATIENT
  Age: 50 Year
  Sex: Male

DRUGS (1)
  1. AVONEX [Suspect]
     Indication: MULTIPLE SCLEROSIS
     Route: 030
     Dates: start: 20000605

REACTIONS (6)
  - BALANCE DISORDER [None]
  - DEPRESSION [None]
  - HYPERSOMNIA [None]
  - PYREXIA [None]
  - STRESS [None]
  - VOMITING [None]
